FAERS Safety Report 7759523-X (Version None)
Quarter: 2011Q3

REPORT INFORMATION
  Report Type: 
  Country: None (occurrence: None)
  Receive Date: 20110919
  Receipt Date: 20110919
  Transmission Date: 20111222
  Serious: Yes (Death, Life-Threatening, Hospitalization, Disabling, Congenital Anomaly, Other)
  Sender: FDA-Public Use
  Company Number: None

PATIENT
  Age: 20 Year
  Sex: Female
  Weight: 68.946 kg

DRUGS (1)
  1. GILDESS FE 1/20 [Suspect]
     Dosage: 1.20
     Route: 048

REACTIONS (15)
  - PERSONALITY CHANGE [None]
  - NAUSEA [None]
  - ACNE [None]
  - PRODUCT PACKAGING ISSUE [None]
  - THINKING ABNORMAL [None]
  - CRYING [None]
  - CONDITION AGGRAVATED [None]
  - SOCIAL AVOIDANT BEHAVIOUR [None]
  - DEPRESSION [None]
  - PRODUCT QUALITY ISSUE [None]
  - ANXIETY [None]
  - PALPITATIONS [None]
  - DYSPEPSIA [None]
  - WEIGHT DECREASED [None]
  - HEADACHE [None]
